FAERS Safety Report 9029709 (Version 1)
Quarter: 2013Q1

REPORT INFORMATION
  Report Type: Spontaneous
  Country: ES (occurrence: ES)
  Receive Date: 20130124
  Receipt Date: 20130124
  Transmission Date: 20140127
  Serious: Yes (Other)
  Sender: FDA-Public Use
  Company Number: ES-ABBOTT-13P-144-1038740-00

PATIENT
  Sex: Male

DRUGS (1)
  1. PROCRIN [Suspect]
     Indication: PROSTATE CANCER
     Route: 058
     Dates: start: 2012

REACTIONS (3)
  - Inhibitory drug interaction [Not Recovered/Not Resolved]
  - Drug ineffective [Not Recovered/Not Resolved]
  - Injection site reaction [Recovering/Resolving]
